FAERS Safety Report 21391052 (Version 1)
Quarter: 2022Q3

REPORT INFORMATION
  Report Type: Spontaneous
  Country: US (occurrence: None)
  Receive Date: 20220927
  Receipt Date: 20220927
  Transmission Date: 20221026
  Serious: Yes (Disabling)
  Sender: FDA-Public Use
  Company Number: None

PATIENT
  Age: 80 Year
  Sex: Female
  Weight: 74.25 kg

DRUGS (8)
  1. SERTRALINE HYDROCHLORIDE [Suspect]
     Active Substance: SERTRALINE HYDROCHLORIDE
     Indication: Depression
     Dosage: OTHER QUANTITY : 1 TABLET(S);?FREQUENCY : DAILY;?
     Route: 048
     Dates: start: 20220802, end: 20220909
  2. LOSARTAN [Concomitant]
     Active Substance: LOSARTAN
  3. vitamins for females over 50 [Concomitant]
  4. VIT D [Concomitant]
  5. MINERALS\VITAMINS [Concomitant]
     Active Substance: MINERALS\VITAMINS
  6. Ostio/biflex [Concomitant]
  7. TYLENOL [Concomitant]
     Active Substance: ACETAMINOPHEN
  8. KRILL OIL [Concomitant]

REACTIONS (8)
  - Coordination abnormal [None]
  - Fall [None]
  - Contusion [None]
  - Joint injury [None]
  - Skin laceration [None]
  - Skin laceration [None]
  - Limb injury [None]
  - Pelvic fracture [None]

NARRATIVE: CASE EVENT DATE: 20220827
